FAERS Safety Report 6975871-5 (Version None)
Quarter: 2010Q3

REPORT INFORMATION
  Report Type: 
  Country: None (occurrence: None)
  Receive Date: 20100910
  Receipt Date: 20100830
  Transmission Date: 20110219
  Serious: Yes (Other)
  Sender: FDA-Public Use
  Company Number: JP-ELI_LILLY_AND_COMPANY-JP201004008287

PATIENT
  Age: 75 Year
  Sex: Female

DRUGS (4)
  1. ZYPREXA [Suspect]
     Indication: SCHIZOPHRENIA
     Dosage: 2.5 MG~5.0MG, DAILY (1/D)
     Route: 048
     Dates: start: 20080101, end: 20100414
  2. DIOVAN [Concomitant]
     Indication: HYPERTENSION
     Dosage: 40 MG, DAILY (1/D)
     Route: 048
  3. AMLODIPINE BESYLATE [Concomitant]
     Indication: HYPERTENSION
     Dosage: 20 MG, DAILY (1/D)
     Route: 048
  4. SILECE [Concomitant]
     Indication: INSOMNIA
     Dosage: UNK, UNKNOWN
     Route: 048

REACTIONS (3)
  - ALTERED STATE OF CONSCIOUSNESS [None]
  - ATRIOVENTRICULAR BLOCK [None]
  - LABILE BLOOD PRESSURE [None]
